FAERS Safety Report 10695584 (Version 1)
Quarter: 2015Q1

REPORT INFORMATION
  Report Type: Spontaneous
  Country: US (occurrence: None)
  Receive Date: 20150106
  Receipt Date: 20150106
  Transmission Date: 20150721
  Serious: Yes (Other)
  Sender: FDA-Public Use
  Company Number: None

PATIENT
  Age: 54 Year
  Sex: Female
  Weight: 85.73 kg

DRUGS (2)
  1. MURO 128 [Suspect]
     Active Substance: SODIUM CHLORIDE
     Indication: CORNEAL DYSTROPHY
     Dosage: APROXIMATELY 6 MONTHS
  2. MURO 128 [Suspect]
     Active Substance: SODIUM CHLORIDE
     Indication: DRY EYE
     Dosage: APROXIMATELY 6 MONTHS

REACTIONS (6)
  - Eye irritation [None]
  - Product quality issue [None]
  - Eye pain [None]
  - Dry eye [None]
  - Disease recurrence [None]
  - Drug administration error [None]

NARRATIVE: CASE EVENT DATE: 20140301
